FAERS Safety Report 21139503 (Version 2)
Quarter: 2023Q1

REPORT INFORMATION
  Report Type: Spontaneous
  Country: FR (occurrence: FR)
  Receive Date: 20220727
  Receipt Date: 20230224
  Transmission Date: 20230418
  Serious: Yes (Death)
  Sender: FDA-Public Use
  Company Number: None

PATIENT
  Age: 52 Year
  Sex: Male

DRUGS (2)
  1. CASPOFUNGIN ACETATE [Suspect]
     Active Substance: CASPOFUNGIN ACETATE
     Indication: Systemic candida
     Dosage: 70 THEN 50 MG/DAY
     Route: 065
     Dates: start: 20170620, end: 20170628
  2. AMBISOME [Suspect]
     Active Substance: AMPHOTERICIN B
     Indication: Systemic candida
     Dosage: 210 MG/DAY
     Route: 065
     Dates: start: 20170414, end: 20170620

REACTIONS (2)
  - Drug ineffective [Fatal]
  - Systemic candida [Fatal]

NARRATIVE: CASE EVENT DATE: 20170621
